FAERS Safety Report 13080153 (Version 3)
Quarter: 2017Q1

REPORT INFORMATION
  Report Type: Report from Study
  Country: US (occurrence: US)
  Receive Date: 20170103
  Receipt Date: 20170223
  Transmission Date: 20170428
  Serious: Yes (Hospitalization)
  Sender: FDA-Public Use
  Company Number: US-ROCHE-1869011

PATIENT
  Age: 62 Year
  Sex: Male
  Weight: 86 kg

DRUGS (29)
  1. VITAMIN D3 [Concomitant]
     Active Substance: CHOLECALCIFEROL
     Indication: PROPHYLAXIS
     Dosage: 2000 UNITS
     Route: 048
  2. BEVACIZUMAB [Suspect]
     Active Substance: BEVACIZUMAB
     Indication: RENAL CELL CARCINOMA
     Dosage: ALSO THE MOST RECENT DOSE OF BEVACIZUMAB?MOST RECENT DOSE 1265 MG OF BEVACIZUMAB WAS ADMINISTERED ON
     Route: 042
     Dates: start: 20161011
  3. ZOFRAN [Concomitant]
     Active Substance: ONDANSETRON HYDROCHLORIDE
     Indication: VOMITING
  4. CLARITIN (UNITED STATES) [Concomitant]
     Indication: HYPERSENSITIVITY
     Route: 048
     Dates: start: 20140908
  5. MICARDIS [Concomitant]
     Active Substance: TELMISARTAN
     Route: 048
     Dates: start: 20161101
  6. PERCOLONE [Concomitant]
     Active Substance: OXYCODONE HYDROCHLORIDE
     Indication: PAIN
     Route: 048
     Dates: start: 20150923
  7. PROCTOFOAM HC [Concomitant]
     Active Substance: HYDROCORTISONE ACETATE\PRAMOXINE HYDROCHLORIDE
     Indication: HAEMORRHOIDS
     Route: 054
     Dates: start: 20160220
  8. PREDNISONE. [Concomitant]
     Active Substance: PREDNISONE
     Route: 065
     Dates: start: 20161203
  9. ATEZOLIZUMAB [Suspect]
     Active Substance: ATEZOLIZUMAB
     Indication: RENAL CELL CARCINOMA
     Dosage: MOST RECENT DOSE PRIOR TO THE EVENT ONSET WAS ON 11/OCT/2016,  01/NOV/2016,
     Route: 042
     Dates: start: 20161011
  10. TYLENOL [Concomitant]
     Active Substance: ACETAMINOPHEN
     Indication: HEADACHE
     Route: 048
     Dates: start: 20150803
  11. TYLENOL [Concomitant]
     Active Substance: ACETAMINOPHEN
     Indication: PYREXIA
  12. MICARDIS [Concomitant]
     Active Substance: TELMISARTAN
     Indication: HYPERTENSION
     Route: 048
     Dates: start: 20161016
  13. PREDNISONE. [Concomitant]
     Active Substance: PREDNISONE
     Route: 065
     Dates: start: 20161223
  14. ZOFRAN [Concomitant]
     Active Substance: ONDANSETRON HYDROCHLORIDE
     Indication: NAUSEA
     Route: 048
     Dates: start: 20140521
  15. L-LYSINE [Concomitant]
     Active Substance: LYSINE
     Indication: MUCOSAL INFLAMMATION
     Route: 048
     Dates: start: 20140612
  16. PREPARATION H (UNK INGREDIENTS) [Concomitant]
     Indication: PALMAR-PLANTAR ERYTHRODYSAESTHESIA SYNDROME
     Dosage: 1 OTHER
     Route: 061
     Dates: start: 20140723
  17. ROLAIDS [Concomitant]
     Active Substance: CALCIUM CARBONATE\MAGNESIUM HYDROXIDE
     Indication: DYSPEPSIA
     Route: 048
     Dates: start: 20140826
  18. NASAL SALINE [Concomitant]
     Active Substance: SODIUM CHLORIDE
     Indication: SINUSITIS
     Route: 045
     Dates: start: 20150614
  19. PREDNISONE. [Concomitant]
     Active Substance: PREDNISONE
     Indication: ACUTE KIDNEY INJURY
     Route: 065
     Dates: start: 20161129
  20. CLONIDINE. [Concomitant]
     Active Substance: CLONIDINE
     Indication: HYPERTENSION
     Route: 048
     Dates: start: 20161101
  21. SUNITINIB [Suspect]
     Active Substance: SUNITINIB
     Indication: RENAL CELL CARCINOMA
     Dosage: 50 MG/DAY ORALLY FOR 4 WEEKS, FOLLOWED BY 2 WEEKS OF REST (DOSED IN 6-WEEK CYCLES)?DOSE OF LAST SUNI
     Route: 048
     Dates: start: 20140521
  22. ORAMAGIC [Concomitant]
     Indication: MUCOSAL INFLAMMATION
     Dosage: 1 OTHER
     Route: 048
     Dates: start: 20140606
  23. MICARDIS [Concomitant]
     Active Substance: TELMISARTAN
     Route: 048
     Dates: start: 20161101
  24. FISH OIL [Concomitant]
     Active Substance: FISH OIL
     Indication: PROPHYLAXIS
     Route: 048
  25. COMPAZINE [Concomitant]
     Active Substance: PROCHLORPERAZINE MALEATE
     Indication: NAUSEA
     Route: 048
     Dates: start: 20140521
  26. PREVACID [Concomitant]
     Active Substance: LANSOPRAZOLE
     Indication: GASTROOESOPHAGEAL REFLUX DISEASE
     Route: 048
     Dates: start: 20150513
  27. PREDNISONE. [Concomitant]
     Active Substance: PREDNISONE
     Route: 065
     Dates: start: 20161202
  28. PREDNISONE. [Concomitant]
     Active Substance: PREDNISONE
     Route: 065
     Dates: start: 20161208
  29. PREDNISONE. [Concomitant]
     Active Substance: PREDNISONE
     Route: 065
     Dates: start: 20161214, end: 20161222

REACTIONS (4)
  - Alanine aminotransferase increased [Not Recovered/Not Resolved]
  - Blood bilirubin increased [Not Recovered/Not Resolved]
  - Aspartate aminotransferase increased [Not Recovered/Not Resolved]
  - Pancreatitis [Not Recovered/Not Resolved]

NARRATIVE: CASE EVENT DATE: 20161213
